FAERS Safety Report 8216429-X (Version None)
Quarter: 2012Q1

REPORT INFORMATION
  Report Type: 
  Country: None (occurrence: None)
  Receive Date: 20120316
  Receipt Date: 20120314
  Transmission Date: 20120608
  Serious: Yes (Other)
  Sender: FDA-Public Use
  Company Number: PHHY2012HU022196

PATIENT
  Age: 56 Year
  Sex: Female

DRUGS (2)
  1. SPIRIVA RESPIMAT [Suspect]
  2. ONBREZ [Suspect]
     Dosage: UNK

REACTIONS (2)
  - LARYNGEAL OEDEMA [None]
  - HYPERSENSITIVITY [None]
